FAERS Safety Report 9013049 (Version 1)
Quarter: 2013Q1

REPORT INFORMATION
  Report Type: Spontaneous
  Country: US (occurrence: US)
  Receive Date: 20130114
  Receipt Date: 20130114
  Transmission Date: 20140127
  Serious: Yes (Hospitalization)
  Sender: FDA-Public Use
  Company Number: US-009507513-1301USA001921

PATIENT
  Age: 42 Year
  Sex: Male

DRUGS (8)
  1. SINGULAIR [Suspect]
  2. INDOCOLLYRE [Concomitant]
  3. TOBREX [Concomitant]
  4. FLIXONASE [Suspect]
     Dosage: RESPIRATORY (INHALATION)
  5. FLIXOTIDE [Suspect]
     Dosage: RESPIRATORY (INHALATION)
  6. CELESTENE [Suspect]
     Route: 048
  7. FORADIL [Suspect]
     Dosage: RESPIRATORY (INHALATION)
  8. ZADITEN [Suspect]
     Route: 048

REACTIONS (1)
  - Allergic granulomatous angiitis [Unknown]
